FAERS Safety Report 12021632 (Version 1)
Quarter: 2016Q1

REPORT INFORMATION
  Report Type: Report from Study
  Country: US (occurrence: US)
  Receive Date: 20160206
  Receipt Date: 20160206
  Transmission Date: 20160526
  Serious: No
  Sender: FDA-Public Use
  Company Number: US-ABBVIE-15K-163-1471189-00

PATIENT
  Sex: Male

DRUGS (3)
  1. NADOLOL. [Concomitant]
     Active Substance: NADOLOL
     Indication: HYPERTENSION
  2. HUMIRA [Suspect]
     Active Substance: ADALIMUMAB
     Indication: CROHN^S DISEASE
     Route: 058
  3. NORVASC [Concomitant]
     Active Substance: AMLODIPINE BESYLATE
     Indication: HYPERTENSION

REACTIONS (6)
  - Vitamin B12 decreased [Recovering/Resolving]
  - Infection [Recovering/Resolving]
  - Asthenia [Recovering/Resolving]
  - Irritable bowel syndrome [Recovering/Resolving]
  - Blood iron decreased [Recovering/Resolving]
  - White blood cell count increased [Recovering/Resolving]

NARRATIVE: CASE EVENT DATE: 2015
